FAERS Safety Report 8349010 (Version 2)
Quarter: 2013Q2

REPORT INFORMATION
  Report Type: Spontaneous
  Country: US (occurrence: US)
  Receive Date: 20120123
  Receipt Date: 20130628
  Transmission Date: 20140414
  Serious: Yes (Other)
  Sender: FDA-Public Use
  Company Number: US-US-EMD SERONO, INC.-7107239

PATIENT
  Sex: Female

DRUGS (2)
  1. REBIF [Suspect]
     Indication: MULTIPLE SCLEROSIS
     Dates: start: 20100713, end: 201107
  2. REBIF [Suspect]
     Route: 058
     Dates: start: 20120701

REACTIONS (2)
  - Abortion missed [Recovered/Resolved]
  - Maternal exposure timing unspecified [Recovered/Resolved]
